FAERS Safety Report 10475369 (Version 1)
Quarter: 2014Q3

REPORT INFORMATION
  Report Type: Spontaneous
  Country: US (occurrence: None)
  Receive Date: 20140924
  Receipt Date: 20140924
  Transmission Date: 20150326
  Serious: Yes (Hospitalization)
  Sender: FDA-Public Use
  Company Number: None

PATIENT
  Age: 66 Year
  Sex: Male
  Weight: 56.4 kg

DRUGS (1)
  1. ERBITUX [Suspect]
     Active Substance: CETUXIMAB

REACTIONS (5)
  - Coronary artery occlusion [None]
  - Chest pain [None]
  - Hypotension [None]
  - Musculoskeletal pain [None]
  - Pain in jaw [None]

NARRATIVE: CASE EVENT DATE: 20140910
